FAERS Safety Report 9938066 (Version 2)
Quarter: 2014Q1

REPORT INFORMATION
  Report Type: Report from Study
  Country: JP (occurrence: JP)
  Receive Date: 20140303
  Receipt Date: 20140327
  Transmission Date: 20141002
  Serious: Yes (Death)
  Sender: FDA-Public Use
  Company Number: JP-ROCHE-1355355

PATIENT
  Age: 67 Year
  Sex: Male

DRUGS (5)
  1. ALTEPLASE [Suspect]
     Indication: EMBOLIC STROKE
     Route: 042
     Dates: start: 20120930, end: 20120930
  2. EDARAVONE [Suspect]
     Indication: EMBOLIC STROKE
     Route: 042
     Dates: start: 20120930, end: 20121010
  3. HEPARIN SODIUM [Concomitant]
     Route: 041
     Dates: start: 20121001, end: 20121010
  4. WARFARIN POTASSIUM [Concomitant]
     Route: 048
     Dates: start: 20121001
  5. GLYCEOL [Concomitant]
     Route: 041
     Dates: start: 20120930, end: 20121010

REACTIONS (1)
  - Pneumonia aspiration [Fatal]
